FAERS Safety Report 5822746-0 (Version None)
Quarter: 2008Q3

REPORT INFORMATION
  Report Type: 
  Country: None (occurrence: None)
  Receive Date: 20080725
  Receipt Date: 20070918
  Transmission Date: 20090109
  Serious: No
  Sender: FDA-Public Use
  Company Number: US-AMGEN-KDL244328

PATIENT
  Age: 55 Year

DRUGS (4)
  1. PROCRIT [Suspect]
     Indication: DRUG USE FOR UNKNOWN INDICATION
     Dates: start: 20070701
  2. INTERFERON [Suspect]
  3. RIBAVIRIN [Suspect]
  4. UNSPECIFIED MEDICATION [Concomitant]

REACTIONS (2)
  - DIARRHOEA [None]
  - FAECES DISCOLOURED [None]
